FAERS Safety Report 8532940-6 (Version None)
Quarter: 2012Q3

REPORT INFORMATION
  Report Type: 
  Country: None (occurrence: None)
  Receive Date: 20120724
  Receipt Date: 20120716
  Transmission Date: 20120928
  Serious: Yes (Hospitalization)
  Sender: FDA-Public Use
  Company Number: US-JNJFOC-20080900540

PATIENT
  Age: 45 Year
  Sex: Male
  Weight: 65 kg

DRUGS (14)
  1. DOXORUBICIN HYDROCHLORIDE [Suspect]
     Indication: LYMPHOMA AIDS RELATED
     Dosage: ON DAY 1
     Route: 042
     Dates: start: 20080318
  2. DOXORUBICIN HYDROCHLORIDE [Suspect]
     Dosage: PATIENT DEVELOPED CATHETER-RELATED INFECTION AFTER CYCE#5
     Route: 042
     Dates: start: 20080626, end: 20080626
  3. PREDNISONE [Suspect]
     Route: 048
     Dates: start: 20080318, end: 20080322
  4. PEGFILGRASTIM [Concomitant]
     Indication: PRODUCT USED FOR UNKNOWN INDICATION
     Route: 065
  5. CYCLOPHOSPHAMIDE [Suspect]
     Indication: LYMPHOMA AIDS RELATED
     Dosage: ON DAY 1
     Route: 042
     Dates: start: 20080318
  6. RITUXIMAB [Suspect]
     Indication: LYMPHOMA AIDS RELATED
     Dosage: ON DAY 1
     Route: 042
     Dates: start: 20080318
  7. CYCLOPHOSPHAMIDE [Suspect]
     Route: 042
     Dates: start: 20080626, end: 20080626
  8. NEUPOGEN [Concomitant]
     Indication: PRODUCT USED FOR UNKNOWN INDICATION
     Route: 065
  9. RITUXIMAB [Suspect]
     Route: 042
     Dates: start: 20080626, end: 20080626
  10. VINCRISTINE [Suspect]
     Dosage: ON DAY 1
     Route: 042
     Dates: start: 20080318
  11. PREDNISONE [Suspect]
     Indication: LYMPHOMA AIDS RELATED
     Route: 048
     Dates: start: 20080626, end: 20080630
  12. VINCRISTINE [Suspect]
     Indication: LYMPHOMA AIDS RELATED
     Route: 042
     Dates: start: 20080626, end: 20080626
  13. NEUPOGEN [Concomitant]
     Indication: PRODUCT USED FOR UNKNOWN INDICATION
     Route: 065
  14. AN UNKNOWN MEDICATION [Concomitant]
     Indication: PROPHYLAXIS
     Route: 065

REACTIONS (1)
  - DEVICE RELATED INFECTION [None]
